FAERS Safety Report 8809926 (Version 3)
Quarter: 2013Q1

REPORT INFORMATION
  Report Type: Report from Study
  Country: US (occurrence: US)
  Receive Date: 20120926
  Receipt Date: 20130110
  Transmission Date: 20140127
  Serious: Yes (Hospitalization, Other)
  Sender: FDA-Public Use
  Company Number: US-ABBOTT-12P-163-0983706-00

PATIENT
  Age: 44 None
  Sex: Female
  Weight: 72.64 kg

DRUGS (13)
  1. HUMIRA PEN [Suspect]
     Indication: PSORIATIC ARTHROPATHY
     Dates: start: 20090407
  2. HUMIRA PEN [Suspect]
     Indication: PSORIASIS
     Dates: start: 20120920
  3. REMICADE [Suspect]
     Indication: PSORIATIC ARTHROPATHY
  4. REMICADE [Suspect]
     Indication: PSORIASIS
     Dates: start: 201208, end: 20120827
  5. DILAUDID [Suspect]
     Indication: PAIN
     Dates: start: 201112, end: 201112
  6. METHOTREXATE [Suspect]
     Indication: PSORIATIC ARTHROPATHY
     Dates: start: 201207, end: 201207
  7. METHOTREXATE [Suspect]
     Indication: PSORIASIS
  8. ATIVAN [Concomitant]
     Indication: INSOMNIA
  9. BENADRYL [Concomitant]
     Indication: INSOMNIA
  10. CETIRIZINE W/PSEUDOEPHEDRINE [Concomitant]
     Indication: SEASONAL ALLERGY
  11. OMEPRAZOLE [Concomitant]
     Indication: DYSPEPSIA
  12. OMEPRAZOLE [Concomitant]
     Indication: DYSPEPSIA
  13. FEXOFENADINE [Concomitant]
     Indication: PRODUCT USED FOR UNKNOWN INDICATION

REACTIONS (17)
  - Biopsy breast abnormal [Unknown]
  - Cough [Recovered/Resolved]
  - Invasive ductal breast carcinoma [Recovered/Resolved]
  - Influenza [Recovered/Resolved]
  - Nausea [Recovered/Resolved]
  - Diarrhoea [Recovered/Resolved]
  - Lip swelling [Recovered/Resolved]
  - Swelling face [Recovered/Resolved]
  - Anaphylactic reaction [Recovered/Resolved]
  - Constipation [Recovered/Resolved]
  - Psoriasis [Not Recovered/Not Resolved]
  - Psoriatic arthropathy [Not Recovered/Not Resolved]
  - Pain in extremity [Not Recovered/Not Resolved]
  - Unevaluable event [Not Recovered/Not Resolved]
  - Psoriatic arthropathy [Not Recovered/Not Resolved]
  - Pruritus [Recovered/Resolved]
  - Procedural pain [Not Recovered/Not Resolved]
